FAERS Safety Report 10085944 (Version 1)
Quarter: 2014Q2

REPORT INFORMATION
  Report Type: Spontaneous
  Country: US (occurrence: US)
  Receive Date: 20140418
  Receipt Date: 20140418
  Transmission Date: 20141212
  Serious: No
  Sender: FDA-Public Use
  Company Number: PHEH2014US007102

PATIENT
  Sex: Male

DRUGS (2)
  1. TASIGNA [Suspect]
     Dosage: UNK UKN, UNK
     Dates: start: 201310
  2. TASIGNA [Suspect]
     Dosage: 800 MG, PER DAY

REACTIONS (1)
  - Incorrect dose administered [Unknown]
